FAERS Safety Report 4749740-5 (Version None)
Quarter: 2005Q3

REPORT INFORMATION
  Report Type: 
  Country: None (occurrence: None)
  Receive Date: 20050819
  Receipt Date: 20050819
  Transmission Date: 20060218
  Serious: Yes (Other)
  Sender: FDA-Public Use
  Company Number: None

PATIENT
  Age: 40 Year
  Sex: Female
  Weight: 61.2356 kg

DRUGS (2)
  1. EFFEXOR [Suspect]
     Indication: GENERALISED ANXIETY DISORDER
     Dosage: 35ML DAILY THEN 75 THEN 150
     Dates: start: 20050310, end: 20050725
  2. EFFEXOR [Suspect]
     Indication: GENERALISED ANXIETY DISORDER
     Dosage: 35ML DAILY THEN 75 THEN 150
     Dates: start: 20050310, end: 20050725

REACTIONS (23)
  - ASTHENIA [None]
  - BRAIN DAMAGE [None]
  - BRAIN OEDEMA [None]
  - DEPRESSION [None]
  - DISTURBANCE IN ATTENTION [None]
  - DRUG WITHDRAWAL SYNDROME [None]
  - FEAR [None]
  - FEELING ABNORMAL [None]
  - FLAT AFFECT [None]
  - HALLUCINATION, AUDITORY [None]
  - HOT FLUSH [None]
  - HYPOAESTHESIA [None]
  - HYPOTHYROIDISM [None]
  - IMPAIRED DRIVING ABILITY [None]
  - MALAISE [None]
  - MEMORY IMPAIRMENT [None]
  - MENTAL IMPAIRMENT [None]
  - MUSCULOSKELETAL STIFFNESS [None]
  - NERVOUS SYSTEM DISORDER [None]
  - NIGHTMARE [None]
  - TENSION [None]
  - VIRAL INFECTION [None]
  - WEIGHT INCREASED [None]
